FAERS Safety Report 17603263 (Version 2)
Quarter: 2020Q1

REPORT INFORMATION
  Report Type: Spontaneous
  Country: US (occurrence: US)
  Receive Date: 20200331
  Receipt Date: 20200331
  Transmission Date: 20200409
  Serious: No
  Sender: FDA-Public Use
  Company Number: US-JNJFOC-20200302095

PATIENT
  Sex: Male

DRUGS (1)
  1. MENS ROGAINE EXTRA STRENGTH [Suspect]
     Active Substance: MINOXIDIL
     Indication: ALOPECIA
     Dosage: PRODUCT START DATE:- AROUND AUGUST?USED WHOLE FIRST BOTTLE, AND USED AS DIRECTED
     Route: 061

REACTIONS (3)
  - Drug ineffective [Unknown]
  - Application site rash [Unknown]
  - Alopecia [Unknown]
